FAERS Safety Report 16822680 (Version 1)
Quarter: 2019Q3

REPORT INFORMATION
  Report Type: Spontaneous
  Country: US (occurrence: US)
  Receive Date: 20190918
  Receipt Date: 20190918
  Transmission Date: 20191005
  Serious: Yes (Death, Hospitalization, Other)
  Sender: FDA-Public Use
  Company Number: US-MYLANLABS-2019M1087339

PATIENT
  Age: 33 Year
  Sex: Female

DRUGS (5)
  1. IDARUBICIN [Suspect]
     Active Substance: IDARUBICIN
     Indication: ACUTE MYELOID LEUKAEMIA
     Route: 065
  2. AZACITIDINE. [Suspect]
     Active Substance: AZACITIDINE
     Indication: ACUTE MYELOID LEUKAEMIA
     Route: 065
  3. CASPOFUNGIN [Concomitant]
     Active Substance: CASPOFUNGIN
     Indication: PROPHYLAXIS
     Route: 065
  4. VORICONAZOLE. [Concomitant]
     Active Substance: VORICONAZOLE
     Indication: PROPHYLAXIS
     Route: 065
  5. CYTARABINE. [Suspect]
     Active Substance: CYTARABINE
     Indication: ACUTE MYELOID LEUKAEMIA
     Route: 065

REACTIONS (12)
  - Infective aneurysm [Recovered/Resolved]
  - Cytopenia [Unknown]
  - Septic shock [Fatal]
  - Neutropenic colitis [Unknown]
  - Respiratory failure [Fatal]
  - Cholecystitis infective [Fatal]
  - Abscess fungal [Recovering/Resolving]
  - Pneumonia bacterial [Fatal]
  - Endophthalmitis [Recovering/Resolving]
  - Staphylococcal infection [Recovered/Resolved]
  - Post procedural infection [Recovered/Resolved]
  - Fusarium infection [Fatal]
